FAERS Safety Report 7226710-9 (Version None)
Quarter: 2011Q1

REPORT INFORMATION
  Report Type: 
  Country: None (occurrence: None)
  Receive Date: 20110114
  Receipt Date: 20101231
  Transmission Date: 20110831
  Serious: Yes (Other)
  Sender: FDA-Public Use
  Company Number: US-RANBAXY-2010RR-40986

PATIENT
  Age: 71 Year
  Sex: Male
  Weight: 61 kg

DRUGS (9)
  1. MIRAPEX [Suspect]
     Indication: RESTLESS LEGS SYNDROME
     Dosage: UNK
     Dates: start: 20090901, end: 20100501
  2. ALLOPURINOL [Concomitant]
     Indication: GOUT
  3. GABAPENTIN [Suspect]
     Indication: RESTLESS LEGS SYNDROME
     Dosage: UNK
     Dates: start: 20090901, end: 20100501
  4. LISINOPRIL [Concomitant]
  5. ATENOLOL [Concomitant]
     Indication: HYPERTENSION
  6. ASPIRIN [Concomitant]
     Dosage: UNK
  7. LIPITOR [Suspect]
     Indication: CARDIAC DISORDER
     Dosage: UNK
     Route: 048
     Dates: start: 19990401
  8. LIPITOR [Suspect]
     Indication: BLOOD CHOLESTEROL INCREASED
  9. OMEPRAZOLE [Concomitant]
     Indication: GASTROOESOPHAGEAL REFLUX DISEASE

REACTIONS (2)
  - DIZZINESS [None]
  - FALL [None]
